FAERS Safety Report 9677480 (Version 1)
Quarter: 2013Q4

REPORT INFORMATION
  Report Type: Report from Study
  Country: AR (occurrence: AR)
  Receive Date: 20131108
  Receipt Date: 20131108
  Transmission Date: 20140711
  Serious: Yes (Other)
  Sender: FDA-Public Use
  Company Number: PHHY2013AR124250

PATIENT
  Age: 54 Year
  Sex: Female

DRUGS (2)
  1. DIOVAN [Suspect]
     Indication: CARDIAC DISORDER
     Dosage: 1 DF (80 MG), PER DAY
     Dates: start: 201308
  2. GALVUS MET [Concomitant]
     Indication: DIABETES MELLITUS
     Dosage: 1 DF (850MG MET, 50MG VILDA), BID
     Route: 048

REACTIONS (2)
  - Hiatus hernia [Recovering/Resolving]
  - Stomach mass [Unknown]
